FAERS Safety Report 16316315 (Version 7)
Quarter: 2023Q4

REPORT INFORMATION
  Report Type: Spontaneous
  Country: ES (occurrence: ES)
  Receive Date: 20190515
  Receipt Date: 20231019
  Transmission Date: 20240110
  Serious: Yes (Hospitalization, Other)
  Sender: FDA-Public Use
  Company Number: ES-TEVA-2019-ES-1043678

PATIENT
  Age: 76 Year
  Sex: Male

DRUGS (6)
  1. OXALIPLATIN [Suspect]
     Active Substance: OXALIPLATIN
     Indication: Colon cancer stage IV
     Dosage: UNK, CYCLIC (THIRD CYCLE)
  2. OXALIPLATIN [Suspect]
     Active Substance: OXALIPLATIN
     Dosage: UNK, CYCLIC (DOSE REDUCTION 50%)
  3. BEVACIZUMAB [Suspect]
     Active Substance: BEVACIZUMAB
     Indication: Colon cancer stage IV
     Dosage: UNK, CYCLIC (THIRD CYCLE)
  4. BEVACIZUMAB [Suspect]
     Active Substance: BEVACIZUMAB
     Dosage: UNK, CYCLIC (DOSE REDUCTION 50%)
  5. CAPECITABINE [Suspect]
     Active Substance: CAPECITABINE
     Indication: Colon cancer stage IV
     Dosage: UNK, CYCLIC (THIRD CYCLE)
  6. CAPECITABINE [Suspect]
     Active Substance: CAPECITABINE
     Dosage: UNK, CYCLIC (DOSE REDUCTION 50%)

REACTIONS (8)
  - Protein-losing gastroenteropathy [Recovered/Resolved]
  - Toxicity to various agents [Recovered/Resolved]
  - Hypoalbuminaemia [Recovered/Resolved]
  - Coagulopathy [Recovered/Resolved]
  - Leukopenia [Recovered/Resolved]
  - Hypocalcaemia [Recovered/Resolved]
  - Enteritis [Recovered/Resolved]
  - Leukocytosis [Recovered/Resolved]
